FAERS Safety Report 13365150 (Version 6)
Quarter: 2020Q2

REPORT INFORMATION
  Report Type: Report from Study
  Country: JP (occurrence: JP)
  Receive Date: 20170323
  Receipt Date: 20200423
  Transmission Date: 20200713
  Serious: Yes (Hospitalization, Other)
  Sender: FDA-Public Use
  Company Number: JP-MYLANLABS-2012S1015004

PATIENT
  Age: 33 Year
  Sex: Male
  Weight: 35.9 kg

DRUGS (45)
  1. NICYSTAGON CAP. 50MG [Suspect]
     Active Substance: CYSTEAMINE
     Dosage: 100 MILLIGRAM, QID
     Route: 048
     Dates: start: 20121113
  2. PREDONINE [Concomitant]
     Active Substance: PREDNISOLONE
     Dosage: 5 MG, UNK
     Route: 048
  3. FEBURIC [Concomitant]
     Active Substance: FEBUXOSTAT
     Indication: CHRONIC KIDNEY DISEASE
     Dosage: 10 MILLIGRAM, QD
     Route: 048
     Dates: start: 2001
  4. NOVOLIN R [Concomitant]
     Active Substance: INSULIN HUMAN
     Dosage: APPROPRIATELY INCREASE OR DECREASE ACCORDING TO BLOOD SUGAR LEVEL
     Route: 058
     Dates: end: 201902
  5. LANTUS [Concomitant]
     Active Substance: INSULIN GLARGINE
     Dosage: ??
     Route: 058
  6. FEROTYM [Concomitant]
     Active Substance: FERROUS CITRATE\SODIUM
     Indication: PRODUCT USED FOR UNKNOWN INDICATION
     Dosage: 50 MG,QD
     Route: 048
     Dates: start: 2007
  7. NICYSTAGON CAP. 50MG [Suspect]
     Active Substance: CYSTEAMINE
     Dosage: 250 MG, QID
     Route: 048
     Dates: start: 20171213, end: 20190625
  8. NICYSTAGON CAP. 50MG [Suspect]
     Active Substance: CYSTEAMINE
     Dosage: 250 MG, QID
     Route: 048
     Dates: start: 20190626
  9. NITROGLYCERIN. [Concomitant]
     Active Substance: NITROGLYCERIN
     Dosage: 5 UNK, UNK
  10. THYRADIN-S [Concomitant]
     Active Substance: LEVOTHYROXINE
     Dosage: 75 ?G, UNK
     Route: 048
     Dates: start: 20170208
  11. BONOTEO [Concomitant]
     Active Substance: MINODRONIC ACID
     Indication: PRODUCT USED FOR UNKNOWN INDICATION
     Dosage: 50 MG, UNK
     Route: 048
  12. FLUMETHOLON [Concomitant]
     Active Substance: FLUOROMETHOLONE
     Indication: PRODUCT USED FOR UNKNOWN INDICATION
     Dosage: UNK
     Route: 047
     Dates: start: 20161214
  13. ADETPHOS [Suspect]
     Active Substance: ADENOSINE TRIPHOSPHATE
     Indication: PRODUCT USED FOR UNKNOWN INDICATION
     Dosage: UNK
     Route: 048
  14. DIOVAN [Concomitant]
     Active Substance: VALSARTAN
     Indication: CHRONIC KIDNEY DISEASE
     Dosage: 40 MG,QD
     Route: 048
     Dates: start: 2006
  15. NIFEDIPINE. [Concomitant]
     Active Substance: NIFEDIPINE
     Dosage: 10 MILLIGRAM
     Route: 048
  16. MYSLEE [Concomitant]
     Active Substance: ZOLPIDEM TARTRATE
     Indication: PRODUCT USED FOR UNKNOWN INDICATION
     Dosage: 10 MG, UNK
     Route: 048
  17. LANTUS [Concomitant]
     Active Substance: INSULIN GLARGINE
     Indication: DIABETES MELLITUS
     Dosage: 2 DF, HS
     Route: 058
     Dates: start: 2007
  18. THYRADIN-S [Concomitant]
     Active Substance: LEVOTHYROXINE
     Indication: CHRONIC KIDNEY DISEASE
     Dosage: 75 ?G,QD
     Route: 048
  19. THYRADIN-S [Concomitant]
     Active Substance: LEVOTHYROXINE
     Dosage: 100 ?G, UNK
     Route: 048
     Dates: start: 20170208, end: 20171010
  20. MILLIS [Concomitant]
     Indication: PRODUCT USED FOR UNKNOWN INDICATION
     Dosage: 5 MG, UNK
     Route: 062
  21. CALCIUM LACTATE [Concomitant]
     Active Substance: CALCIUM LACTATE
     Indication: PRODUCT USED FOR UNKNOWN INDICATION
     Dosage: 2 G, UNK
     Route: 048
  22. NEORAL [Concomitant]
     Active Substance: CYCLOSPORINE
     Indication: PRODUCT USED FOR UNKNOWN INDICATION
     Dosage: 50 MG,BID
     Route: 048
     Dates: start: 2000
  23. THYRADIN-S [Concomitant]
     Active Substance: LEVOTHYROXINE
     Dosage: 75 ?G, UNK
     Route: 048
     Dates: start: 20150710, end: 20170202
  24. THYRADIN-S [Concomitant]
     Active Substance: LEVOTHYROXINE
     Dosage: 62.5 ?G, UNK
     Route: 048
     Dates: start: 20180221, end: 20180424
  25. FRANDOL [Concomitant]
     Active Substance: ISOSORBIDE DINITRATE
     Indication: PRODUCT USED FOR UNKNOWN INDICATION
     Dosage: 40 MG, UNK
     Route: 062
  26. VEGAMOX [Concomitant]
     Active Substance: MOXIFLOXACIN HYDROCHLORIDE
     Indication: PRODUCT USED FOR UNKNOWN INDICATION
     Dosage: UNK
     Route: 047
     Dates: start: 20161214
  27. NICYSTAGON CAP. 50MG [Suspect]
     Active Substance: CYSTEAMINE
     Indication: CYSTINOSIS
     Dosage: 450 MILLIGRAM, QID
     Route: 048
     Dates: start: 20120707, end: 20120717
  28. NICYSTAGON CAP. 50MG [Suspect]
     Active Substance: CYSTEAMINE
     Dosage: 200 MILLIGRAM, QID
     Route: 048
     Dates: start: 20120919
  29. NICYSTAGON CAP. 50MG [Suspect]
     Active Substance: CYSTEAMINE
     Dosage: 200 MILLIGRAM, QID
     Route: 048
     Dates: start: 20120724
  30. NICYSTAGON CAP. 50MG [Suspect]
     Active Substance: CYSTEAMINE
     Dosage: 200 MG, QID
     Route: 048
     Dates: start: 20150306, end: 20171212
  31. MECOBALAMIN [Suspect]
     Active Substance: METHYLCOBALAMIN
     Indication: PRODUCT USED FOR UNKNOWN INDICATION
     Dosage: UNK
     Route: 048
  32. BREDININ [Concomitant]
     Active Substance: MIZORIBINE
     Indication: PRODUCT USED FOR UNKNOWN INDICATION
     Dosage: 150 MG,QD
     Route: 048
     Dates: start: 199404
  33. PREDONINE [Concomitant]
     Active Substance: PREDNISOLONE
     Indication: RENAL TRANSPLANT
     Dosage: 10 MILLIGRAM, QD
     Route: 048
     Dates: start: 199404
  34. NOVOLIN R [Concomitant]
     Active Substance: INSULIN HUMAN
     Indication: DIABETES MELLITUS
     Dosage: 20 DOSAGE FORM, QD
     Route: 058
     Dates: start: 2007
  35. NITROGLYCERIN. [Concomitant]
     Active Substance: NITROGLYCERIN
     Indication: CHRONIC KIDNEY DISEASE
     Dosage: 5 MILLIGRAM, BID
     Route: 062
     Dates: start: 2000
  36. ZETIA [Concomitant]
     Active Substance: EZETIMIBE
     Indication: CHRONIC KIDNEY DISEASE
     Dosage: 10 MG,QD
     Route: 048
     Dates: start: 2010
  37. THYRADIN-S [Concomitant]
     Active Substance: LEVOTHYROXINE
     Dosage: 100 MICROGRAM
     Route: 048
     Dates: start: 20180425
  38. NIFEDIPINE. [Concomitant]
     Active Substance: NIFEDIPINE
     Indication: PRODUCT USED FOR UNKNOWN INDICATION
     Dosage: 20 MG, UNK
     Route: 048
  39. MUCOSTA [Concomitant]
     Active Substance: REBAMIPIDE
     Indication: PRODUCT USED FOR UNKNOWN INDICATION
     Dosage: UNK
     Route: 047
     Dates: start: 20161214
  40. FEBURIC [Concomitant]
     Active Substance: FEBUXOSTAT
     Dosage: 10 MG, UNK
     Route: 048
  41. CALBLOCK [Concomitant]
     Active Substance: AZELNIDIPINE
     Indication: PRODUCT USED FOR UNKNOWN INDICATION
     Dosage: 16 MG,QD
     Route: 048
     Dates: start: 201204
  42. ALPHA D [Concomitant]
     Indication: PRODUCT USED FOR UNKNOWN INDICATION
     Dosage: 0.25 MICROGRAM, QD
     Route: 048
     Dates: start: 2010
  43. THYRADIN-S [Concomitant]
     Active Substance: LEVOTHYROXINE
     Dosage: 75 ?G, UNK
     Route: 048
     Dates: start: 20171011, end: 20180220
  44. ALFAROL [Concomitant]
     Active Substance: ALFACALCIDOL
     Indication: PRODUCT USED FOR UNKNOWN INDICATION
     Dosage: 0.25 ?G, UNK
     Route: 048
  45. RIONA [Concomitant]
     Active Substance: FERRIC CITRATE ANHYDROUS
     Indication: PRODUCT USED FOR UNKNOWN INDICATION
     Dosage: 750 MG, UNK
     Route: 048
     Dates: start: 20160105

REACTIONS (9)
  - Fracture [Not Recovered/Not Resolved]
  - Keratitis bacterial [Not Recovered/Not Resolved]
  - Shunt occlusion [Recovered/Resolved]
  - Transaminases increased [Recovered/Resolved]
  - Fall [Unknown]
  - Hyperphosphataemia [Recovered/Resolved]
  - Shunt occlusion [Recovered/Resolved]
  - Decreased appetite [Recovered/Resolved]
  - Pseudomembranous colitis [Recovering/Resolving]

NARRATIVE: CASE EVENT DATE: 201207
